FAERS Safety Report 9536736 (Version 9)
Quarter: 2015Q1

REPORT INFORMATION
  Report Type: Report from Study
  Country: FR (occurrence: FR)
  Receive Date: 20130919
  Receipt Date: 20150302
  Transmission Date: 20150721
  Serious: Yes (Death, Hospitalization)
  Sender: FDA-Public Use
  Company Number: FR-B.I. PHARMACEUTICALS,INC./RIDGEFIELD-2013-BI-28389BI

PATIENT
  Age: 72 Year
  Sex: Male
  Weight: 59 kg

DRUGS (3)
  1. BIBW 2992 [Suspect]
     Active Substance: AFATINIB
     Indication: SQUAMOUS CELL CARCINOMA OF LUNG
     Dosage: 40 MG
     Route: 048
     Dates: start: 20130814, end: 20130910
  2. POLYNOXYLIN [Concomitant]
     Indication: GENERAL PHYSICAL HEALTH DETERIORATION
     Dosage: DOSE PER APPLICATION AND DAILY DOSE: 1L
     Route: 042
     Dates: start: 20130930, end: 20131009
  3. BIBW 2992 [Suspect]
     Active Substance: AFATINIB
     Dosage: 30 MG
     Route: 048
     Dates: start: 20130912, end: 20130918

REACTIONS (7)
  - Malignant neoplasm progression [Fatal]
  - Myocardial ischaemia [Unknown]
  - Dehydration [Recovered/Resolved]
  - Nausea [Recovered/Resolved]
  - Diarrhoea [Recovered/Resolved]
  - Vomiting [Recovered/Resolved]
  - Vomiting [Recovered/Resolved]

NARRATIVE: CASE EVENT DATE: 20130815
